FAERS Safety Report 7622702-6 (Version None)
Quarter: 2011Q3

REPORT INFORMATION
  Report Type: 
  Country: None (occurrence: None)
  Receive Date: 20110719
  Receipt Date: 20110719
  Transmission Date: 20111222
  Serious: Yes (Death)
  Sender: FDA-Public Use
  Company Number: None

PATIENT
  Age: 73 Year
  Sex: Female

DRUGS (13)
  1. EPOGEN [Concomitant]
  2. PROAIR HFA [Concomitant]
  3. ISOSORBIDE DINITRATE [Concomitant]
  4. SPIRIVA [Concomitant]
  5. LOSARTAN POTASSIUM [Concomitant]
  6. LETAIRIS [Suspect]
     Indication: PULMONARY ARTERIAL HYPERTENSION
     Dosage: LETAIRIS 10 MG DAILY ORALLY
     Route: 048
     Dates: start: 20100901, end: 20110601
  7. METOPROLOL TARTRATE [Concomitant]
  8. PAROXETINE HCL [Concomitant]
  9. LEVEMIR [Concomitant]
  10. ZEMPLAR [Concomitant]
  11. FLUTICASONE [Concomitant]
  12. SIMVASTATIN [Concomitant]
  13. LEVOTHYROXINE SODIUM [Concomitant]

REACTIONS (10)
  - HYPOTENSION [None]
  - ATRIAL FIBRILLATION [None]
  - BRADYCARDIA [None]
  - OEDEMA PERIPHERAL [None]
  - REFUSAL OF TREATMENT BY PATIENT [None]
  - LACTIC ACIDOSIS [None]
  - ACUTE MYOCARDIAL INFARCTION [None]
  - RESPIRATORY FAILURE [None]
  - PULSELESS ELECTRICAL ACTIVITY [None]
  - EMBOLISM [None]
